FAERS Safety Report 9281765 (Version 3)
Quarter: 2013Q2

REPORT INFORMATION
  Report Type: Spontaneous
  Country: AU (occurrence: AU)
  Receive Date: 20130510
  Receipt Date: 20130611
  Transmission Date: 20140414
  Serious: Yes (Death)
  Sender: FDA-Public Use
  Company Number: AU-B.I. PHARMACEUTICALS,INC./RIDGEFIELD-2013-AU-00539AU

PATIENT
  Age: 89 Year
  Sex: Male

DRUGS (14)
  1. PRADAXA [Suspect]
     Indication: CEREBROVASCULAR ACCIDENT PROPHYLAXIS
     Dosage: 220 MG
     Route: 048
     Dates: start: 20110921
  2. PRADAXA [Suspect]
     Indication: ATRIAL FIBRILLATION
  3. AXIT [Concomitant]
     Indication: DEPRESSION
     Route: 048
  4. IN2H VIT D [Concomitant]
     Indication: OSTEOPOROSIS
     Route: 048
  5. CALTRATE [Concomitant]
     Indication: OSTEOPOROSIS
     Dosage: 600 MG
     Route: 048
  6. FEBRIDOL [Concomitant]
     Indication: PAIN
     Dosage: 1000 MG
     Route: 048
  7. PANADLOSTEO [Concomitant]
     Indication: PAIN
     Dosage: 2660 MG
     Route: 048
  8. BENEFIBER [Concomitant]
     Indication: CONSTIPATION
     Route: 048
  9. PHOSPHATE-SZ [Concomitant]
     Indication: BLOOD PHOSPHORUS DECREASED
     Route: 048
  10. OSMOLAX [Concomitant]
     Indication: CONSTIPATION
     Route: 048
  11. HYDROXY-B12 [Concomitant]
     Indication: VITAMIN B12 DEFICIENCY
     Dosage: 1000 MCG/ML
     Route: 030
  12. IONIL LOTION [Concomitant]
     Indication: SEBORRHOEIC DERMATITIS
     Route: 061
  13. APO-LATANOPROST [Concomitant]
     Indication: GLAUCOMA
     Route: 047
  14. PROLIA [Concomitant]
     Indication: OSTEOPOROSIS
     Route: 058

REACTIONS (1)
  - Completed suicide [Fatal]
